FAERS Safety Report 6342323-5 (Version None)
Quarter: 2009Q3

REPORT INFORMATION
  Report Type: 
  Country: None (occurrence: None)
  Receive Date: 20090907
  Receipt Date: 20090826
  Transmission Date: 20100115
  Serious: Yes (Other)
  Sender: FDA-Public Use
  Company Number: US-PFIZER INC-2007067649

PATIENT
  Sex: Male

DRUGS (24)
  1. BLINDED *NO SUBJECT DRUG [Suspect]
     Indication: HIV INFECTION
     Dosage: UNK
     Route: 048
     Dates: start: 20050426, end: 20050712
  2. BLINDED *PLACEBO [Suspect]
     Indication: HIV INFECTION
     Dosage: UNK
     Route: 048
     Dates: start: 20050426, end: 20050712
  3. BLINDED MARAVIROC [Suspect]
     Indication: HIV INFECTION
     Dosage: UNK
     Route: 048
     Dates: start: 20050426, end: 20050712
  4. SULFAMETHOXAZOLE [Concomitant]
     Dosage: UNK
     Route: 048
     Dates: start: 19970101
  5. EFFEXOR [Concomitant]
     Dosage: UNK
     Route: 048
     Dates: start: 20040101
  6. DELATESTRYL [Concomitant]
     Dosage: UNK
     Route: 030
     Dates: start: 19980101
  7. DECA-DURABOLIN [Concomitant]
     Dosage: UNK
     Route: 030
     Dates: start: 19980101
  8. OXANDRIN [Concomitant]
     Dosage: UNK
     Route: 048
     Dates: start: 20050101
  9. LOMOTIL [Concomitant]
     Dosage: UNK
     Route: 048
     Dates: start: 20050101
  10. LANTUS [Concomitant]
     Dosage: UNK
     Route: 058
     Dates: start: 20061115
  11. RANITIDINE [Concomitant]
     Dosage: UNK
     Route: 048
     Dates: start: 20050101
  12. NORVIR [Concomitant]
     Dosage: UNK
     Route: 048
     Dates: start: 20030101, end: 20070816
  13. INSULIN [Concomitant]
     Dosage: UNK
     Route: 058
     Dates: start: 20050813
  14. REQUIP [Concomitant]
     Dosage: UNK
     Route: 048
     Dates: start: 20050101
  15. BENAZEPRIL [Concomitant]
     Dosage: UNK
     Route: 048
     Dates: start: 20050101
  16. NIASPAN [Concomitant]
     Dosage: UNK
     Route: 048
     Dates: start: 20050101
  17. ACETYLSALICYLIC ACID [Concomitant]
     Dosage: UNK
     Route: 048
     Dates: start: 20050101
  18. TMC114 [Concomitant]
     Dosage: UNK
     Route: 048
     Dates: start: 20060328, end: 20070816
  19. TMC-125 [Concomitant]
     Dosage: UNK
     Route: 048
     Dates: start: 20060328
  20. COMBIVIR [Concomitant]
     Dosage: UNK
     Route: 048
     Dates: start: 20060328
  21. CICLOPIROX [Concomitant]
     Dosage: UNK
     Route: 061
     Dates: start: 20061115
  22. CRESTOR [Concomitant]
     Dosage: UNK
     Route: 048
     Dates: start: 20070725
  23. PLAVIX [Concomitant]
     Dosage: UNK
     Route: 048
     Dates: start: 20061115
  24. TOPROL-XL [Concomitant]
     Dosage: UNK
     Route: 048
     Dates: start: 20061115

REACTIONS (1)
  - MYOCARDIAL INFARCTION [None]
